FAERS Safety Report 6202641-8 (Version None)
Quarter: 2009Q2

REPORT INFORMATION
  Report Type: 
  Country: None (occurrence: None)
  Receive Date: 20090526
  Receipt Date: 20090514
  Transmission Date: 20091009
  Serious: Yes (Other)
  Sender: FDA-Public Use
  Company Number: DE-ELI_LILLY_AND_COMPANY-DE200902001287

PATIENT
  Age: 13 Year
  Sex: Male

DRUGS (1)
  1. STRATTERA [Suspect]
     Indication: ATTENTION DEFICIT/HYPERACTIVITY DISORDER
     Dosage: 50 MG, DAILY (1/D)
     Route: 048
     Dates: start: 20070905

REACTIONS (4)
  - CENTRAL NERVOUS SYSTEM LESION [None]
  - CONVULSION [None]
  - DIZZINESS [None]
  - GRAND MAL CONVULSION [None]
